FAERS Safety Report 5500864-4 (Version None)
Quarter: 2007Q4

REPORT INFORMATION
  Report Type: 
  Country: None (occurrence: None)
  Receive Date: 20071029
  Receipt Date: 20071022
  Transmission Date: 20080405
  Serious: Yes (Disabling)
  Sender: FDA-Public Use
  Company Number: MX-ELI_LILLY_AND_COMPANY-MX200710005441

PATIENT
  Age: 70 Year
  Sex: Female

DRUGS (1)
  1. CYMBALTA [Suspect]
     Indication: NEURALGIA
     Dosage: 60 MG, UNKNOWN
     Route: 048

REACTIONS (3)
  - DIABETIC MICROANGIOPATHY [None]
  - LEG AMPUTATION [None]
  - PERIPHERAL ISCHAEMIA [None]
